FAERS Safety Report 6526364-0 (Version None)
Quarter: 2009Q4

REPORT INFORMATION
  Report Type: 
  Country: None (occurrence: None)
  Receive Date: 20091228
  Receipt Date: 20091210
  Transmission Date: 20100525
  Serious: Yes (Hospitalization)
  Sender: FDA-Public Use
  Company Number: 1-20897991

PATIENT
  Age: 70 Year
  Sex: Female
  Weight: 63.5036 kg

DRUGS (17)
  1. CARBAMAZEPINE [Suspect]
     Indication: TRIGEMINAL NEURALGIA
     Dosage: 200 MG DAILY, ORAL
     Route: 048
     Dates: start: 20070101
  2. AMLODIPINE [Concomitant]
  3. ATENOLOL [Concomitant]
  4. POTASSIUM CHLORIDE [Concomitant]
  5. PLAVIX [Concomitant]
  6. LISINOPRIL AND HYDROCHLOROTHIAZIDE [Concomitant]
  7. TERAZOSIN HCL [Concomitant]
  8. CRESTOR [Concomitant]
  9. SERTRALINE HCL [Concomitant]
  10. FIORICET [Concomitant]
  11. ANTIVERT [Concomitant]
  12. CALCIUM WITH VITAMIN D [Concomitant]
  13. FISH OIL [Concomitant]
  14. Z-PAK [Concomitant]
  15. TRAMADOL HCL [Concomitant]
  16. MOBIC [Concomitant]
  17. TRIFLEX [Concomitant]

REACTIONS (16)
  - ARTERIOSCLEROSIS [None]
  - ASTHENIA [None]
  - ATRIOVENTRICULAR BLOCK FIRST DEGREE [None]
  - BLOOD PRESSURE SYSTOLIC INCREASED [None]
  - CALCINOSIS [None]
  - CEREBROVASCULAR ACCIDENT [None]
  - CHILLS [None]
  - CHRONIC OBSTRUCTIVE PULMONARY DISEASE [None]
  - DYSGRAPHIA [None]
  - HEADACHE [None]
  - HYPONATRAEMIA [None]
  - PRODUCT SUBSTITUTION ISSUE [None]
  - RHINITIS [None]
  - SEPSIS [None]
  - TREMOR [None]
  - VISUAL IMPAIRMENT [None]
